FAERS Safety Report 9813565 (Version 1)
Quarter: 2014Q1

REPORT INFORMATION
  Report Type: Spontaneous
  Country: FR (occurrence: FR)
  Receive Date: 20140113
  Receipt Date: 20140113
  Transmission Date: 20141002
  Serious: Yes (Hospitalization)
  Sender: FDA-Public Use
  Company Number: FR-PFIZER INC-2014003038

PATIENT
  Age: 90 Year
  Sex: Female

DRUGS (12)
  1. EFFEXOR LP [Suspect]
     Dosage: 75 MG, 1X/DAY
     Route: 048
     Dates: start: 20130801
  2. XANAX [Interacting]
     Dosage: 0.5 DF, 3X/DAY
     Route: 048
     Dates: start: 20130903
  3. TEMESTA [Interacting]
     Dosage: 1 MG, 1X/DAY AT BEDTIME
     Route: 048
     Dates: start: 20130801
  4. IXPRIM [Interacting]
     Dosage: 1 DF, 3X/DAY
     Route: 048
     Dates: start: 20130801
  5. IXPRIM [Interacting]
     Dosage: 8 DF, DAILY
     Route: 048
     Dates: start: 20130906, end: 20130906
  6. CETIRIZINE MERCK GENERICS [Interacting]
     Dosage: 10 MG, DAILY
     Route: 048
     Dates: start: 20130801
  7. PERINDOPRIL [Concomitant]
     Dosage: 4 MG, 1X/DAY
     Route: 048
  8. AMLOR [Concomitant]
     Dosage: 5 MG, 1X/DAY IN THE MORNING
  9. CRESTOR [Concomitant]
     Dosage: 5 MG, 1X/DAY
     Route: 048
  10. PARACETAMOL [Concomitant]
     Dosage: 1000 MG, 1X/DAY AT NIGHT
     Route: 048
  11. INEXIUM /01479302/ [Concomitant]
     Dosage: 20 MG, 1X/DAY
     Route: 048
  12. LASILIX [Concomitant]
     Dosage: 20 MG, 1X/DAY IN THE MORNING

REACTIONS (8)
  - Incorrect dose administered [Recovered/Resolved]
  - Hallucination, visual [Recovered/Resolved]
  - Confusional state [Recovered/Resolved]
  - Drug interaction [Recovered/Resolved]
  - Insomnia [Unknown]
  - Anaemia [Unknown]
  - Fatigue [Unknown]
  - Drug level below therapeutic [Unknown]
